FAERS Safety Report 6544049-1 (Version None)
Quarter: 2010Q1

REPORT INFORMATION
  Report Type: 
  Country: None (occurrence: None)
  Receive Date: 20100120
  Receipt Date: 20100114
  Transmission Date: 20100710
  Serious: No
  Sender: FDA-Public Use
  Company Number: US-B.I. PHARMACEUTICALS,INC./RIDGEFIELD-2009-BP-14068BP

PATIENT
  Sex: Female
  Weight: 49.9 kg

DRUGS (15)
  1. SPIRIVA [Suspect]
     Indication: CHRONIC OBSTRUCTIVE PULMONARY DISEASE
     Dosage: 18 MCG
     Route: 055
     Dates: start: 20060101
  2. SPIRIVA [Suspect]
     Indication: ASTHMA
  3. SPIRIVA [Suspect]
     Indication: EMPHYSEMA
  4. ADVAIR DISKUS 100/50 [Concomitant]
     Indication: ASTHMA
     Route: 055
  5. ADVAIR DISKUS 100/50 [Concomitant]
     Indication: CHRONIC OBSTRUCTIVE PULMONARY DISEASE
  6. PROAIR HFA [Concomitant]
     Indication: ASTHMA
     Route: 055
  7. PROAIR HFA [Concomitant]
     Indication: CHRONIC OBSTRUCTIVE PULMONARY DISEASE
  8. FOSAMAX [Concomitant]
     Indication: OSTEOPOROSIS
  9. IBUPROFEN [Concomitant]
     Indication: PAIN
  10. DARVOCET [Concomitant]
     Indication: PAIN
  11. VITAMINS [Concomitant]
     Indication: PROPHYLAXIS
  12. HCZT [Concomitant]
     Dosage: 25 MG
  13. LISINOPRIL [Concomitant]
     Dosage: 3.5 MG
  14. NORVASC [Concomitant]
     Dosage: 5 MG
  15. CALCIUM [Concomitant]

REACTIONS (2)
  - DRUG EFFECT DECREASED [None]
  - DYSPNOEA [None]
